FAERS Safety Report 13536144 (Version 2)
Quarter: 2017Q2

REPORT INFORMATION
  Report Type: Spontaneous
  Country: US (occurrence: US)
  Receive Date: 20170511
  Receipt Date: 20170623
  Transmission Date: 20170830
  Serious: No
  Sender: FDA-Public Use
  Company Number: US-PFIZER INC-2017203685

PATIENT
  Age: 59 Year
  Sex: Female
  Weight: 57 kg

DRUGS (2)
  1. DUAVEE [Suspect]
     Active Substance: BAZEDOXIFENE ACETATE\ESTROGENS, CONJUGATED
     Indication: MOOD SWINGS
     Dosage: ONCE A DAY ([BAZEDOXIFENE ACETATE 20MG]/ [CONJUGATED ESTROGENS 0.45MG])
     Route: 048
  2. DUAVEE [Suspect]
     Active Substance: BAZEDOXIFENE ACETATE\ESTROGENS, CONJUGATED
     Indication: HORMONE REPLACEMENT THERAPY

REACTIONS (5)
  - Feeling abnormal [Recovering/Resolving]
  - Malaise [Recovering/Resolving]
  - Muscle spasms [Recovering/Resolving]
  - Hot flush [Recovered/Resolved]
  - Nausea [Recovering/Resolving]
